FAERS Safety Report 9161087 (Version 1)
Quarter: 2013Q1

REPORT INFORMATION
  Report Type: Spontaneous
  Country: GB (occurrence: GB)
  Receive Date: 20130313
  Receipt Date: 20130313
  Transmission Date: 20140127
  Serious: Yes (Other)
  Sender: FDA-Public Use
  Company Number: GB-TEVA-389222ISR

PATIENT
  Age: 47 Year
  Sex: Male
  Weight: 98.43 kg

DRUGS (9)
  1. LANSOPRAZOLE [Suspect]
     Dates: start: 20130124
  2. BISOPROLOL [Concomitant]
     Dates: start: 20121121
  3. SIMVASTATIN [Concomitant]
     Indication: ILL-DEFINED DISORDER
     Dates: start: 20121121
  4. SIMVASTATIN [Concomitant]
     Dates: start: 20130124
  5. CLOPIDOGREL [Concomitant]
     Dates: start: 20130102
  6. CLINDAMYCIN PHOSPHATE [Concomitant]
     Dates: start: 20130103, end: 20130131
  7. ERYTHROMYCIN [Concomitant]
     Dates: start: 20130103, end: 20130110
  8. CETIRIZINE [Concomitant]
     Dates: start: 20130218
  9. HYDROCORTISONE [Concomitant]
     Dates: start: 20130218

REACTIONS (1)
  - Eczema [Recovering/Resolving]
